FAERS Safety Report 6483511-7 (Version None)
Quarter: 2009Q4

REPORT INFORMATION
  Report Type: 
  Country: None (occurrence: None)
  Receive Date: 20091208
  Receipt Date: 20091208
  Transmission Date: 20100525
  Serious: Yes (Hospitalization)
  Sender: FDA-Public Use
  Company Number: None

PATIENT
  Age: 66 Year
  Sex: Male

DRUGS (2)
  1. LISINOPRIL [Suspect]
     Indication: CARDIAC FAILURE CONGESTIVE
     Dosage: 10 MG EVERY DAY PO
     Route: 048
     Dates: start: 20080103, end: 20091114
  2. CEPHALEXIN [Suspect]
     Indication: INFECTION
     Dosage: 250M MG TID PO
     Route: 048
     Dates: start: 20091108, end: 20091113

REACTIONS (1)
  - ANGIOEDEMA [None]
